FAERS Safety Report 8282403 (Version 4)
Quarter: 2013Q3

REPORT INFORMATION
  Report Type: Spontaneous
  Country: US (occurrence: US)
  Receive Date: 20111209
  Receipt Date: 20130923
  Transmission Date: 20140515
  Serious: Yes (Hospitalization)
  Sender: FDA-Public Use
  Company Number: US-GLAXOSMITHKLINE-A0957370A

PATIENT
  Age: 66 Year
  Sex: Female

DRUGS (2)
  1. AVANDAMET [Suspect]
     Indication: TYPE 2 DIABETES MELLITUS
     Route: 048
     Dates: start: 200409, end: 200503
  2. AVANDIA [Suspect]
     Indication: TYPE 2 DIABETES MELLITUS
     Dosage: 8MG PER DAY
     Route: 048
     Dates: start: 200509, end: 200608

REACTIONS (3)
  - Cerebrovascular accident [Unknown]
  - Heart injury [Unknown]
  - Atrial fibrillation [Unknown]
